FAERS Safety Report 21714201 (Version 2)
Quarter: 2022Q4

REPORT INFORMATION
  Report Type: Spontaneous
  Country: CN (occurrence: CN)
  Receive Date: 20221212
  Receipt Date: 20221219
  Transmission Date: 20230112
  Serious: No
  Sender: FDA-Public Use
  Company Number: CN-002147023-NVSC2022CN286463

PATIENT
  Age: 59 Year
  Sex: Female

DRUGS (1)
  1. BENAZEPRIL HYDROCHLORIDE [Suspect]
     Active Substance: BENAZEPRIL HYDROCHLORIDE
     Indication: Hypertension
     Dosage: 10 MG, QD
     Route: 048
     Dates: start: 20221031, end: 20221115

REACTIONS (1)
  - Cough [Recovering/Resolving]

NARRATIVE: CASE EVENT DATE: 20221110
